FAERS Safety Report 18368003 (Version 1)
Quarter: 2020Q4

REPORT INFORMATION
  Report Type: Spontaneous
  Country: CN (occurrence: CN)
  Receive Date: 20201009
  Receipt Date: 20201009
  Transmission Date: 20210114
  Serious: Yes (Other)
  Sender: FDA-Public Use
  Company Number: CN-ELI_LILLY_AND_COMPANY-CN202009012919

PATIENT
  Age: 37 Year
  Sex: Male

DRUGS (2)
  1. TRULICITY [Suspect]
     Active Substance: DULAGLUTIDE
     Indication: BLOOD GLUCOSE INCREASED
     Dosage: 1.5 MG, WEEKLY (1/W)
     Route: 058
     Dates: start: 20200907, end: 20200907
  2. GLUCOPHAGE [Concomitant]
     Active Substance: METFORMIN HYDROCHLORIDE
     Indication: BLOOD GLUCOSE INCREASED
     Dosage: 0.5 G, TID
     Route: 048
     Dates: start: 20200904, end: 20200925

REACTIONS (5)
  - Nausea [Recovering/Resolving]
  - Decreased appetite [Recovering/Resolving]
  - Vomiting [Recovering/Resolving]
  - Abdominal distension [Recovering/Resolving]
  - Discomfort [Recovering/Resolving]

NARRATIVE: CASE EVENT DATE: 20200908
